FAERS Safety Report 8495242-2 (Version None)
Quarter: 2012Q3

REPORT INFORMATION
  Report Type: 
  Country: None (occurrence: None)
  Receive Date: 20120709
  Receipt Date: 20120628
  Transmission Date: 20120928
  Serious: Yes (Hospitalization)
  Sender: FDA-Public Use
  Company Number: US-MSD-1207USA00116

PATIENT

DRUGS (3)
  1. LISINOPRIL [Concomitant]
  2. JANUVIA [Suspect]
     Indication: TYPE 2 DIABETES MELLITUS
     Dosage: 100 MG, QD
     Route: 048
  3. METFORMIN HCL [Concomitant]
     Dosage: 850

REACTIONS (4)
  - DEHYDRATION [None]
  - AMYLASE INCREASED [None]
  - LIPASE INCREASED [None]
  - BLOOD ALKALINE PHOSPHATASE INCREASED [None]
